FAERS Safety Report 13130637 (Version 1)
Quarter: 2017Q1

REPORT INFORMATION
  Report Type: Spontaneous
  Country: US (occurrence: US)
  Receive Date: 20170118
  Receipt Date: 20170118
  Transmission Date: 20170428
  Serious: No
  Sender: FDA-Public Use
  Company Number: None

PATIENT
  Age: 58 Year
  Sex: Male

DRUGS (1)
  1. ZYTIGA [Suspect]
     Active Substance: ABIRATERONE ACETATE
     Indication: PROSTATE CANCER
     Dates: start: 201512, end: 201701

REACTIONS (3)
  - Disease progression [None]
  - Prostatic specific antigen increased [None]
  - Therapy cessation [None]

NARRATIVE: CASE EVENT DATE: 20170118
